FAERS Safety Report 15764933 (Version 1)
Quarter: 2018Q4

REPORT INFORMATION
  Report Type: Report from Study
  Country: JP (occurrence: JP)
  Receive Date: 20181227
  Receipt Date: 20181227
  Transmission Date: 20190205
  Serious: Yes (Hospitalization)
  Sender: FDA-Public Use
  Company Number: JP-SA-2018SA340234

PATIENT
  Age: 72 Year
  Sex: Female
  Weight: 42 kg

DRUGS (2)
  1. OXALIPLATIN. [Suspect]
     Active Substance: OXALIPLATIN
     Dosage: 85 MG/M2, QOW
     Dates: start: 20181120, end: 20181120
  2. OXALIPLATIN. [Suspect]
     Active Substance: OXALIPLATIN
     Indication: GASTRIC CANCER
     Dosage: 85 MG/M2, QOW
     Route: 041
     Dates: start: 20181106, end: 20181106

REACTIONS (1)
  - Duodenal perforation [Recovering/Resolving]

NARRATIVE: CASE EVENT DATE: 20181124
